FAERS Safety Report 19899435 (Version 1)
Quarter: 2021Q3

REPORT INFORMATION
  Report Type: Spontaneous
  Country: IT (occurrence: IT)
  Receive Date: 20210930
  Receipt Date: 20210930
  Transmission Date: 20211014
  Serious: Yes (Other)
  Sender: FDA-Public Use
  Company Number: IT-ABBVIE-21K-083-4096053-00

PATIENT
  Age: 49 Year

DRUGS (1)
  1. VALPROIC ACID. [Suspect]
     Active Substance: VALPROIC ACID
     Indication: DRUG ABUSE
     Route: 048
     Dates: start: 20180711, end: 20180711

REACTIONS (2)
  - Headache [Unknown]
  - Drug abuse [Unknown]

NARRATIVE: CASE EVENT DATE: 20180711
